FAERS Safety Report 25100052 (Version 1)
Quarter: 2025Q1

REPORT INFORMATION
  Report Type: Spontaneous
  Country: CN (occurrence: CN)
  Receive Date: 20250320
  Receipt Date: 20250320
  Transmission Date: 20250409
  Serious: Yes (Other)
  Sender: GILEAD
  Company Number: CN-GILEAD-2025-0707341

PATIENT
  Age: 37 Year

DRUGS (1)
  1. VEMLIDY [Suspect]
     Active Substance: TENOFOVIR ALAFENAMIDE FUMARATE
     Indication: Hepatitis B
     Route: 048

REACTIONS (5)
  - Seizure [Unknown]
  - Somnolence [Unknown]
  - Asthenia [Unknown]
  - Dizziness [Unknown]
  - Urine abnormality [Unknown]
